FAERS Safety Report 9210581 (Version 1)
Quarter: 2013Q2

REPORT INFORMATION
  Report Type: Spontaneous
  Country: US (occurrence: US)
  Receive Date: 20130404
  Receipt Date: 20130404
  Transmission Date: 20140414
  Serious: Yes (Hospitalization, Disabling, Other)
  Sender: FDA-Public Use
  Company Number: US-009507513-0908USA01335

PATIENT
  Sex: Female
  Weight: 73.92 kg

DRUGS (4)
  1. FOSAMAX [Suspect]
     Indication: OSTEOPOROSIS PROPHYLAXIS
     Dosage: 70 MG, QW
     Route: 048
     Dates: start: 19980701, end: 20061204
  2. FOSAMAX [Suspect]
     Dosage: 70 MG, QW
     Route: 048
     Dates: start: 20070822, end: 20070919
  3. FOSAMAX [Suspect]
     Dosage: 70 MG, QD
     Route: 048
     Dates: start: 199807
  4. PREMPRO [Concomitant]
     Dates: start: 19980701, end: 200209

REACTIONS (24)
  - Low turnover osteopathy [Not Recovered/Not Resolved]
  - Osteoporosis [Not Recovered/Not Resolved]
  - Femur fracture [Unknown]
  - Intramedullary rod insertion [Unknown]
  - Femur fracture [Not Recovered/Not Resolved]
  - Asthma [Unknown]
  - Dermatitis contact [Unknown]
  - Anxiety [Unknown]
  - Diverticulum [Unknown]
  - Supraventricular tachycardia [Unknown]
  - Lumbar spinal stenosis [Unknown]
  - Spinal osteoarthritis [Unknown]
  - Intervertebral disc degeneration [Unknown]
  - Scoliosis [Not Recovered/Not Resolved]
  - Lumbar radiculopathy [Unknown]
  - Intermittent claudication [Unknown]
  - Neutropenia [Unknown]
  - Fracture delayed union [Unknown]
  - Overdose [Unknown]
  - Gingivitis [Unknown]
  - Back pain [Not Recovered/Not Resolved]
  - Pain in extremity [Unknown]
  - Gastritis [Unknown]
  - Gastrooesophageal reflux disease [Unknown]
